FAERS Safety Report 5906889-9 (Version None)
Quarter: 2008Q4

REPORT INFORMATION
  Report Type: 
  Country: None (occurrence: None)
  Receive Date: 20081003
  Receipt Date: 20080829
  Transmission Date: 20090506
  Serious: Yes (Other)
  Sender: FDA-Public Use
  Company Number: GB-RANBAXY-2008RR-18383

PATIENT
  Age: 61 Year
  Sex: Male
  Weight: 108 kg

DRUGS (6)
  1. TERBINAFINE HCL [Suspect]
     Indication: ONYCHOMYCOSIS
     Dosage: 250 MG, QD
     Route: 048
     Dates: start: 20080620, end: 20080718
  2. BENDROFLUMETHIAZIDE [Concomitant]
     Dosage: 5 MG, QD
  3. LISINOPRIL [Concomitant]
     Dosage: 10 MG, QD
  4. SIMVASTATIN [Concomitant]
     Dosage: 40 MG, QD
  5. SOTALOL HCL [Concomitant]
     Dosage: 40 MG, BID
  6. WARFARIN SODIUM [Concomitant]

REACTIONS (2)
  - JOINT STIFFNESS [None]
  - JOINT SWELLING [None]
